FAERS Safety Report 9547352 (Version 1)
Quarter: 2013Q3

REPORT INFORMATION
  Report Type: Spontaneous
  Country: US (occurrence: US)
  Receive Date: 20130924
  Receipt Date: 20130924
  Transmission Date: 20140515
  Serious: No
  Sender: FDA-Public Use
  Company Number: US-JNJFOC-20130907451

PATIENT
  Age: 56 Year
  Sex: Male
  Weight: 97.52 kg

DRUGS (3)
  1. DURAGESIC [Suspect]
     Indication: PAIN
     Route: 062
  2. DURAGESIC [Suspect]
     Indication: PAIN
     Route: 062
  3. JANUVIA [Concomitant]
     Indication: DIABETES MELLITUS
     Route: 065

REACTIONS (9)
  - Drug withdrawal syndrome [Not Recovered/Not Resolved]
  - Product quality issue [Recovered/Resolved]
  - Product quality issue [Unknown]
  - Wrong technique in drug usage process [Unknown]
  - Application site scar [Not Recovered/Not Resolved]
  - Product distribution issue [Not Recovered/Not Resolved]
  - Drug dose omission [Recovered/Resolved]
  - Malaise [Not Recovered/Not Resolved]
  - Application site perspiration [Unknown]
